FAERS Safety Report 25690538 (Version 1)
Quarter: 2025Q3

REPORT INFORMATION
  Report Type: Spontaneous
  Country: CN (occurrence: CN)
  Receive Date: 20250818
  Receipt Date: 20250818
  Transmission Date: 20251021
  Serious: Yes (Hospitalization)
  Sender: PFIZER
  Company Number: CN-PFIZER INC-PV202500097700

PATIENT
  Age: 86 Year
  Sex: Male
  Weight: 70 kg

DRUGS (4)
  1. LINEZOLID [Suspect]
     Active Substance: LINEZOLID
     Indication: Infection
     Dosage: 0.6 G, 2X/DAY
     Route: 041
     Dates: start: 20250805, end: 20250808
  2. LINEZOLID [Suspect]
     Active Substance: LINEZOLID
     Indication: Pneumonia
  3. LINEZOLID [Suspect]
     Active Substance: LINEZOLID
     Indication: Sepsis
  4. LINEZOLID [Suspect]
     Active Substance: LINEZOLID
     Indication: Enterococcal infection

REACTIONS (2)
  - Platelet count decreased [Unknown]
  - Drug level increased [Unknown]

NARRATIVE: CASE EVENT DATE: 20250808
